FAERS Safety Report 18106064 (Version 2)
Quarter: 2020Q3

REPORT INFORMATION
  Report Type: Spontaneous
  Country: KR (occurrence: KR)
  Receive Date: 20200804
  Receipt Date: 20200818
  Transmission Date: 20201103
  Serious: Yes (Hospitalization, Other)
  Sender: FDA-Public Use
  Company Number: KR-LUPIN PHARMACEUTICALS INC.-2020-03918

PATIENT
  Age: 32 Year
  Sex: Female

DRUGS (5)
  1. VALPROIC ACID. [Interacting]
     Active Substance: VALPROIC ACID
     Dosage: 600 MILLIGRAM, QD
     Route: 048
  2. LAMOTRIGINE. [Suspect]
     Active Substance: LAMOTRIGINE
     Indication: TEMPORAL LOBE EPILEPSY
     Dosage: 450 MILLIGRAM, QD
     Route: 065
  3. LAMOTRIGINE. [Interacting]
     Active Substance: LAMOTRIGINE
     Indication: STATUS EPILEPTICUS
  4. VALPROIC ACID. [Interacting]
     Active Substance: VALPROIC ACID
     Dosage: ORAL DOSE WAS REDUCED ON THE SECOND DAY OF HOSPITALIZATION
     Route: 048
  5. VALPROIC ACID. [Interacting]
     Active Substance: VALPROIC ACID
     Indication: STATUS EPILEPTICUS
     Dosage: 1800 MILLIGRAM (30 MG/KG)
     Route: 040

REACTIONS (9)
  - Toxicity to various agents [Recovering/Resolving]
  - Nausea [Unknown]
  - Dizziness [Recovering/Resolving]
  - Nystagmus [Recovering/Resolving]
  - Vertigo [Unknown]
  - Ataxia [Unknown]
  - Neurotoxicity [Recovering/Resolving]
  - Vision blurred [Unknown]
  - Drug interaction [Unknown]
